FAERS Safety Report 4621939-8 (Version None)
Quarter: 2005Q1

REPORT INFORMATION
  Report Type: 
  Country: None (occurrence: None)
  Receive Date: 20050329
  Receipt Date: 20050322
  Transmission Date: 20050727
  Serious: Yes (Other)
  Sender: FDA-Public Use
  Company Number: PHBS2005CA04191

PATIENT
  Sex: Female

DRUGS (3)
  1. ALDACTONE [Concomitant]
     Indication: OEDEMA
  2. PREMARIN [Concomitant]
  3. ELIDEL [Suspect]
     Dosage: UNK, QD
     Route: 061
     Dates: start: 20050322

REACTIONS (6)
  - CHOKING SENSATION [None]
  - DYSPHAGIA [None]
  - EYELID PTOSIS [None]
  - HYPOAESTHESIA [None]
  - NASAL DISCOMFORT [None]
  - PAIN [None]
